FAERS Safety Report 8795179 (Version 2)
Quarter: 2015Q2

REPORT INFORMATION
  Report Type: Report from Study
  Country: US (occurrence: US)
  Receive Date: 20120917
  Receipt Date: 20150619
  Transmission Date: 20150821
  Serious: Yes (Death)
  Sender: FDA-Public Use
  Company Number: US-ROCHE-1129277

PATIENT
  Sex: Male

DRUGS (7)
  1. GEMZAR [Concomitant]
     Active Substance: GEMCITABINE HYDROCHLORIDE
  2. FLUOROURACIL. [Concomitant]
     Active Substance: FLUOROURACIL
  3. AVASTIN [Suspect]
     Active Substance: BEVACIZUMAB
     Indication: PANCREATIC CARCINOMA
     Route: 042
  4. OXALIPLATIN. [Concomitant]
     Active Substance: OXALIPLATIN
  5. LEUCOVORIN [Concomitant]
     Active Substance: LEUCOVORIN
  6. TARCEVA [Suspect]
     Active Substance: ERLOTINIB HYDROCHLORIDE
     Indication: PANCREATIC CARCINOMA
     Route: 048
  7. OXYCODONE [Concomitant]
     Active Substance: OXYCODONE

REACTIONS (8)
  - Abdominal pain upper [Unknown]
  - Fatigue [Unknown]
  - Off label use [Unknown]
  - Death [Fatal]
  - Back pain [Unknown]
  - Musculoskeletal pain [Unknown]
  - Hepatic neoplasm [Unknown]
  - Disease progression [Unknown]
